FAERS Safety Report 5028437-0 (Version None)
Quarter: 2006Q2

REPORT INFORMATION
  Report Type: 
  Country: None (occurrence: None)
  Receive Date: 20060617
  Receipt Date: 20060601
  Transmission Date: 20061013
  Serious: Yes (Hospitalization)
  Sender: FDA-Public Use
  Company Number: CA-GLAXOSMITHKLINE-A0607826A

PATIENT
  Age: 69 Year
  Sex: Female
  Weight: 125 kg

DRUGS (8)
  1. AVANDIA [Suspect]
     Indication: DIABETES MELLITUS NON-INSULIN-DEPENDENT
     Dosage: 4MG PER DAY
     Route: 048
     Dates: start: 20050201
  2. METFORMIN HCL [Concomitant]
     Dosage: 500MG TWICE PER DAY
  3. COUMADIN [Concomitant]
  4. LANOXIN [Concomitant]
  5. LASIX [Concomitant]
     Dosage: 80MG TWICE PER DAY
  6. ALDACTONE [Concomitant]
     Dosage: 75MG TWICE PER DAY
  7. ZANTAC [Concomitant]
     Dosage: 150MG TWICE PER DAY
  8. VASOTEC [Concomitant]
     Dosage: 5MG TWICE PER DAY

REACTIONS (8)
  - BLOOD CREATININE INCREASED [None]
  - BLOOD POTASSIUM INCREASED [None]
  - BRONCHIAL DISORDER [None]
  - CARDIAC FAILURE CONGESTIVE [None]
  - FLUID RETENTION [None]
  - OEDEMA PERIPHERAL [None]
  - PULMONARY OEDEMA [None]
  - TROPONIN [None]
